FAERS Safety Report 8786590 (Version 1)
Quarter: 2012Q4

REPORT INFORMATION
  Report Type: 
  Country: AT (occurrence: AT)
  Receive Date: 20120914
  Receipt Date: 20120914
  Transmission Date: 20130627
  Serious: Yes (Other)
  Sender: FDA-Public Use
  Company Number: PHHY2012AT079715

PATIENT

DRUGS (2)
  1. RASILEZ HCT [Suspect]
     Dates: start: 201001
  2. BLOPRESS [Concomitant]

REACTIONS (3)
  - Angina pectoris [Recovering/Resolving]
  - Chest discomfort [Recovering/Resolving]
  - Dyspnoea [Recovering/Resolving]
